FAERS Safety Report 4282414-6 (Version None)
Quarter: 2004Q1

REPORT INFORMATION
  Report Type: 
  Country: None (occurrence: None)
  Receive Date: 20040112
  Receipt Date: 20031027
  Transmission Date: 20041129
  Serious: No
  Sender: FDA-Public Use
  Company Number: PHEH2003US07957

PATIENT
  Age: 2 Month
  Sex: Male
  Weight: 5.9 kg

DRUGS (1)
  1. ELIDEL [Suspect]
     Indication: ECZEMA
     Dosage: BID, TOPICAL
     Route: 061
     Dates: start: 20030611, end: 20030618

REACTIONS (4)
  - DERMATITIS EXFOLIATIVE [None]
  - DRY SKIN [None]
  - ERYTHEMA [None]
  - SKIN HYPOPIGMENTATION [None]
